FAERS Safety Report 6387369-6 (Version None)
Quarter: 2009Q3

REPORT INFORMATION
  Report Type: 
  Country: None (occurrence: None)
  Receive Date: 20090930
  Receipt Date: 20090921
  Transmission Date: 20100115
  Serious: Yes (Other)
  Sender: FDA-Public Use
  Company Number: 2008AL004178

PATIENT
  Age: 84 Year
  Sex: Female
  Weight: 51.2565 kg

DRUGS (19)
  1. DIGOXIN [Suspect]
     Indication: HEART RATE IRREGULAR
     Dosage: 0.25MG, DAILY, PO
     Route: 048
     Dates: start: 20080101, end: 20080501
  2. SYNTHROID [Concomitant]
  3. VITAMINS [Concomitant]
  4. FOLTRIN [Concomitant]
  5. AMOXICILLIN [Concomitant]
  6. CEFDINIR [Concomitant]
  7. ALPRAZOLAM [Concomitant]
  8. QUALAQUIN [Concomitant]
  9. XANAX [Concomitant]
  10. FLUCONAZOLE [Concomitant]
  11. VALTREX [Concomitant]
  12. PROPOXYPHENE HCL CAP [Concomitant]
  13. LYRICA [Concomitant]
  14. LIDODERM [Concomitant]
  15. FERROUS SULFATE TAB [Concomitant]
  16. HYDRALAZINE HCL [Concomitant]
  17. NYSTATIN [Concomitant]
  18. CEPHALEXIN [Concomitant]
  19. CIPROFLOXACIN HYDROCHLORIDE [Concomitant]

REACTIONS (13)
  - COLD SWEAT [None]
  - DIZZINESS [None]
  - FEELING ABNORMAL [None]
  - HYPOTENSION [None]
  - MULTIPLE INJURIES [None]
  - NAUSEA [None]
  - NERVOUS SYSTEM DISORDER [None]
  - OVERDOSE [None]
  - PAIN [None]
  - PALPITATIONS [None]
  - VISION BLURRED [None]
  - VOMITING [None]
  - WEIGHT DECREASED [None]
